FAERS Safety Report 21123642 (Version 2)
Quarter: 2022Q3

REPORT INFORMATION
  Report Type: Spontaneous
  Country: IL (occurrence: IL)
  Receive Date: 20220725
  Receipt Date: 20220810
  Transmission Date: 20221027
  Serious: Yes (Hospitalization)
  Sender: FDA-Public Use
  Company Number: IL-ASTELLAS PHARMA EUROPE B.V.-2022US025179

PATIENT
  Age: 23 Year
  Sex: Female
  Weight: 53 kg

DRUGS (13)
  1. PROGRAF [Interacting]
     Active Substance: TACROLIMUS
     Indication: Renal transplant
     Route: 048
  2. PROGRAF [Interacting]
     Active Substance: TACROLIMUS
     Route: 048
     Dates: start: 20220110, end: 20220110
  3. PROGRAF [Interacting]
     Active Substance: TACROLIMUS
     Route: 048
     Dates: start: 20220111, end: 20220111
  4. PROGRAF [Interacting]
     Active Substance: TACROLIMUS
     Route: 048
     Dates: start: 20220112, end: 20220113
  5. PROGRAF [Interacting]
     Active Substance: TACROLIMUS
     Route: 048
     Dates: start: 20220114, end: 20220114
  6. PROGRAF [Interacting]
     Active Substance: TACROLIMUS
     Dosage: 0.5 MG, ONCE DAILY
     Route: 048
     Dates: start: 20220115, end: 20220116
  7. PROGRAF [Interacting]
     Active Substance: TACROLIMUS
     Dosage: UNK UNK, UNKNOWN FREQ. (RESUMED)
     Route: 048
  8. PAXLOVID [Interacting]
     Active Substance: NIRMATRELVIR\RITONAVIR
     Indication: COVID-19
     Dosage: 300 MG/100 MG, ONCE DAILY
     Route: 048
     Dates: start: 20220111, end: 20220111
  9. PAXLOVID [Interacting]
     Active Substance: NIRMATRELVIR\RITONAVIR
     Dosage: 300 MG/100 MG, TWICE DAILY
     Route: 048
     Dates: start: 20220112, end: 20220112
  10. PREDNISONE [Concomitant]
     Active Substance: PREDNISONE
     Indication: Renal transplant
     Route: 048
  11. PREDNISONE [Concomitant]
     Active Substance: PREDNISONE
     Route: 048
     Dates: start: 202201
  12. MYCOPHENOLIC ACID [Concomitant]
     Active Substance: MYCOPHENOLIC ACID
     Indication: Renal transplant
     Route: 048
     Dates: end: 202201
  13. VITAMIN D [Concomitant]
     Active Substance: VITAMIN D NOS
     Indication: Product used for unknown indication
     Dosage: 1000 U, ONCE DAILY
     Route: 048

REACTIONS (3)
  - COVID-19 [Recovered/Resolved]
  - Blood creatinine increased [Recovered/Resolved]
  - Drug interaction [Unknown]

NARRATIVE: CASE EVENT DATE: 20220101
